FAERS Safety Report 23145611 (Version 1)
Quarter: 2023Q4

REPORT INFORMATION
  Report Type: Report from Study
  Country: TW (occurrence: TW)
  Receive Date: 20231103
  Receipt Date: 20231103
  Transmission Date: 20240110
  Serious: Yes (Other)
  Sender: FDA-Public Use
  Company Number: TW-GILEAD-2023-0649792

PATIENT
  Age: 53 Year
  Sex: Female

DRUGS (1)
  1. SACITUZUMAB GOVITECAN-HZIY [Suspect]
     Active Substance: SACITUZUMAB GOVITECAN-HZIY
     Indication: Triple negative breast cancer
     Dosage: 180 MG
     Route: 065
     Dates: start: 20230927

REACTIONS (2)
  - Chronic hepatitis [Unknown]
  - Gastrooesophageal reflux disease [Unknown]
